FAERS Safety Report 5915181-8 (Version None)
Quarter: 2008Q3

REPORT INFORMATION
  Report Type: 
  Country: None (occurrence: None)
  Receive Date: 20080909
  Receipt Date: 20080110
  Transmission Date: 20090109
  Serious: Yes (Death)
  Sender: FDA-Public Use
  Company Number: 163-20785-08010565 (0)

PATIENT
  Age: 59 Year
  Sex: Male

DRUGS (1)
  1. THALOMID [Suspect]
     Indication: LUNG NEOPLASM MALIGNANT
     Dosage: 500 MG, 5 IN 1 D, ORAL
     Route: 048
     Dates: start: 20051021, end: 20060101

REACTIONS (1)
  - LUNG NEOPLASM MALIGNANT [None]
